FAERS Safety Report 8601232-9 (Version None)
Quarter: 2012Q3

REPORT INFORMATION
  Report Type: 
  Country: None (occurrence: None)
  Receive Date: 20120817
  Receipt Date: 20120810
  Transmission Date: 20120928
  Serious: Yes (Hospitalization)
  Sender: FDA-Public Use
  Company Number: PHHY2012AU070732

PATIENT
  Sex: Male

DRUGS (1)
  1. CLOZARIL [Suspect]
     Dosage: 350 MG, UNK
     Dates: start: 20120221

REACTIONS (4)
  - TACHYCARDIA [None]
  - HYPOTENSION [None]
  - ABDOMINAL PAIN [None]
  - DIARRHOEA [None]
